FAERS Safety Report 9998273 (Version 3)
Quarter: 2014Q2

REPORT INFORMATION
  Report Type: Report from Study
  Country: RU (occurrence: RU)
  Receive Date: 20140312
  Receipt Date: 20140415
  Transmission Date: 20141212
  Serious: Yes (Hospitalization)
  Sender: FDA-Public Use
  Company Number: RU-ABBVIE-14P-251-1209248-00

PATIENT
  Age: 59 Year
  Sex: Male

DRUGS (3)
  1. LUCRIN DEPOT [Suspect]
     Indication: PROSTATE CANCER
     Dates: start: 20110621, end: 20120217
  2. LUCRIN DEPOT [Suspect]
     Dates: start: 20120816, end: 20121114
  3. LUCRIN DEPOT [Suspect]
     Dates: start: 20130114, end: 20130410

REACTIONS (1)
  - Cholecystitis acute [Recovered/Resolved]
